FAERS Safety Report 6803798-8 (Version None)
Quarter: 2010Q2

REPORT INFORMATION
  Report Type: 
  Country: None (occurrence: None)
  Receive Date: 20100628
  Receipt Date: 20100615
  Transmission Date: 20101027
  Serious: Yes (Life-Threatening, Hospitalization)
  Sender: FDA-Public Use
  Company Number: US-ELI_LILLY_AND_COMPANY-US201006004789

PATIENT
  Age: 27 Year
  Sex: Male

DRUGS (4)
  1. ZYPREXA [Suspect]
     Indication: BIPOLAR DISORDER
     Dosage: 15 MG, DAILY (1/D)
  2. DILAUDID [Concomitant]
     Dosage: 4 MG, UNKNOWN
  3. MORPHINE [Concomitant]
     Dosage: 210 MG, UNKNOWN
  4. ADDERALL 10 [Concomitant]

REACTIONS (1)
  - STAPHYLOCOCCAL INFECTION [None]
